FAERS Safety Report 12176503 (Version 1)
Quarter: 2016Q1

REPORT INFORMATION
  Report Type: Spontaneous
  Country: US (occurrence: US)
  Receive Date: 20160314
  Receipt Date: 20160314
  Transmission Date: 20160526
  Serious: No
  Sender: FDA-Public Use
  Company Number: US-AKORN PHARMACEUTICALS-2015AKN00716

PATIENT
  Sex: Male
  Weight: 61.68 kg

DRUGS (4)
  1. MYORISAN [Suspect]
     Active Substance: ISOTRETINOIN
     Indication: ACNE
     Dosage: UNK
     Route: 048
     Dates: start: 20151127, end: 201512
  2. MYORISAN [Suspect]
     Active Substance: ISOTRETINOIN
     Dosage: UNK
  3. MULTIVITAMIN [Concomitant]
     Active Substance: VITAMINS
     Indication: ACNE
  4. MYORISAN [Suspect]
     Active Substance: ISOTRETINOIN
     Indication: ACNE
     Dosage: UNK
     Route: 048
     Dates: start: 20151127, end: 201512

REACTIONS (7)
  - Epistaxis [Unknown]
  - Muscular weakness [Unknown]
  - Arthralgia [Unknown]
  - Scar [Unknown]
  - Lymphadenopathy [Unknown]
  - Dry skin [Unknown]
  - Acne [Unknown]

NARRATIVE: CASE EVENT DATE: 2015
